FAERS Safety Report 8367054-1 (Version None)
Quarter: 2012Q2

REPORT INFORMATION
  Report Type: 
  Country: None (occurrence: None)
  Receive Date: 20120517
  Receipt Date: 20120511
  Transmission Date: 20120825
  Serious: Yes (Hospitalization, Other)
  Sender: FDA-Public Use
  Company Number: US-ACTELION-A-NJ2008-19242

PATIENT

DRUGS (9)
  1. VENTAVIS [Suspect]
     Indication: PULMONARY ARTERIAL HYPERTENSION
     Dosage: 5 UG, 6 X A DAY
     Route: 055
     Dates: start: 20070428, end: 20080118
  2. VENTAVIS [Suspect]
     Dosage: 5 UG, QID
     Route: 055
     Dates: start: 20080821
  3. VENTAVIS [Suspect]
     Dosage: 4-5 X PER DAILY
     Route: 055
     Dates: start: 20120316
  4. ALDACTONE [Concomitant]
  5. VENTAVIS [Suspect]
     Dosage: 5 UG, TID
     Route: 055
     Dates: start: 20080101, end: 20080228
  6. REVATIO [Concomitant]
  7. PROCARDIA [Concomitant]
  8. BENICAR [Concomitant]
  9. COUMADIN [Concomitant]

REACTIONS (13)
  - SNEEZING [None]
  - HEADACHE [None]
  - DYSPHONIA [None]
  - EPISTAXIS [None]
  - NASAL CONGESTION [None]
  - SWELLING FACE [None]
  - DIALYSIS [None]
  - HYPOTENSION [None]
  - SYNCOPE [None]
  - RHINORRHOEA [None]
  - SINUSITIS [None]
  - COUGH [None]
  - DIZZINESS [None]
